FAERS Safety Report 13029261 (Version 1)
Quarter: 2016Q4

REPORT INFORMATION
  Report Type: Report from Study
  Country: ES (occurrence: ES)
  Receive Date: 20161215
  Receipt Date: 20161215
  Transmission Date: 20170207
  Serious: Yes (Death)
  Sender: FDA-Public Use
  Company Number: ES-ROCHE-1863244

PATIENT
  Age: 55 Year
  Sex: Male
  Weight: 66 kg

DRUGS (1)
  1. AVASTIN [Suspect]
     Active Substance: BEVACIZUMAB
     Indication: GLIOBLASTOMA
     Route: 065
     Dates: start: 20160901, end: 20160915

REACTIONS (3)
  - Drug ineffective [Unknown]
  - Off label use [Unknown]
  - Disease progression [Fatal]

NARRATIVE: CASE EVENT DATE: 20160915
